FAERS Safety Report 10137556 (Version 1)
Quarter: 2014Q2

REPORT INFORMATION
  Report Type: Spontaneous
  Country: US (occurrence: US)
  Receive Date: 20140429
  Receipt Date: 20140429
  Transmission Date: 20141212
  Serious: Yes (Hospitalization, Other)
  Sender: FDA-Public Use
  Company Number: US-BAYER-2014-059737

PATIENT
  Age: 22 Year
  Sex: Female
  Weight: 40.54 kg

DRUGS (10)
  1. YAZ [Suspect]
  2. VICODIN [Concomitant]
  3. LEXAPRO [Concomitant]
     Dosage: 10 MG, UNK
  4. PRENATAL VITAMINS [Concomitant]
  5. EFFEXOR XR [Concomitant]
  6. TRAZODONE [Concomitant]
  7. XARELTO [Concomitant]
  8. LYRICA [Concomitant]
  9. METFORMIN [Concomitant]
  10. HYDROCHLOROTHIAZIDE [Concomitant]

REACTIONS (6)
  - Renal vein thrombosis [None]
  - Deep vein thrombosis [None]
  - Transverse sinus thrombosis [None]
  - Pulmonary embolism [None]
  - Pelvic venous thrombosis [None]
  - Jugular vein thrombosis [None]
